FAERS Safety Report 24212258 (Version 2)
Quarter: 2024Q3

REPORT INFORMATION
  Report Type: Other
  Country: US (occurrence: US)
  Receive Date: 20240815
  Receipt Date: 20240829
  Transmission Date: 20241016
  Serious: No
  Sender: INTERCEPT PHARMACEUTICALS
  Company Number: US-INTERCEPT-PM2024001545

PATIENT
  Sex: Female

DRUGS (2)
  1. OCALIVA [Suspect]
     Active Substance: OBETICHOLIC ACID
     Indication: Primary biliary cholangitis
     Dosage: 10 MILLIGRAM, QD
     Route: 048
     Dates: start: 201704
  2. URSODIOL [Concomitant]
     Active Substance: URSODIOL

REACTIONS (1)
  - Fluid retention [Not Recovered/Not Resolved]
